FAERS Safety Report 7568768-3 (Version None)
Quarter: 2011Q2

REPORT INFORMATION
  Report Type: 
  Country: None (occurrence: None)
  Receive Date: 20110623
  Receipt Date: 20110609
  Transmission Date: 20111010
  Serious: Yes (Hospitalization)
  Sender: FDA-Public Use
  Company Number: US-ROCHE-770372

PATIENT
  Sex: Female
  Weight: 70.8 kg

DRUGS (24)
  1. ZOLOFT [Concomitant]
     Dates: start: 20080220
  2. PREVACID [Concomitant]
     Dosage: FREQUENCY: QD
     Dates: start: 20061122
  3. VICODIN [Concomitant]
     Dates: start: 20040501
  4. TRAZODONE HCL [Concomitant]
     Dates: start: 20030101
  5. OXYGEN [Concomitant]
     Dosage: 21 LITER/ NIGHT
     Dates: start: 20040101
  6. TOCILIZUMAB [Suspect]
     Indication: RHEUMATOID ARTHRITIS
     Dosage: DATE OF LAST DOSE PRIOR TO SAE: 09 MARCH 2011
     Route: 042
     Dates: start: 20050928
  7. PAXIL [Concomitant]
     Dosage: FREQUENCY: QD
     Dates: start: 20080719
  8. ASPIRIN [Concomitant]
     Dosage: FREQUENCY: QD
     Dates: start: 20080508
  9. EXCEDRIN (MIGRAINE) [Concomitant]
     Dosage: DRUG NAME REPORTED AS: EXERDRIN MIGRAINE DOSAGE REGIMEN REPORTED AS: 1 TO 2 PER DAY.
     Dates: start: 20051021
  10. METHOTREXATE [Concomitant]
  11. ACTONEL [Concomitant]
     Dates: start: 20090119
  12. TOCILIZUMAB [Suspect]
     Dosage: PATIENT WAS PREVIOUSLY ENROLLED IN WA18063 STUDY.
     Route: 042
  13. FOLIC ACID [Concomitant]
     Dates: start: 20030101
  14. SEPTRA DS [Concomitant]
     Dates: start: 20080109, end: 20080125
  15. LISINOPRIL [Concomitant]
     Dates: start: 20080508
  16. MULTIPLE VITS [Concomitant]
     Dates: start: 20030101
  17. ACTONEL [Concomitant]
     Dosage: AT NIGHT
     Dates: start: 20040216, end: 20061126
  18. SINGULAIR [Concomitant]
     Dosage: DRUG: SINEGUAN, TDD: 50MG HS
     Dates: start: 20090211
  19. FOLATE/THIAMINE [Concomitant]
     Dosage: DRUG: FOLATE
     Dates: start: 20030101
  20. ASPIRIN [Concomitant]
     Dates: start: 20080510
  21. SUPER B COMPLEX [Concomitant]
     Dosage: FREQUENCY: QD
     Dates: start: 20080901
  22. METHOTREXATE [Concomitant]
     Dates: start: 20090119
  23. CALCIUM CARBONATE [Concomitant]
     Dates: start: 20030101
  24. VITAMIN D [Concomitant]
     Dosage: FREQUENCY: QD
     Dates: start: 20090215

REACTIONS (2)
  - INFECTIVE EXACERBATION OF CHRONIC OBSTRUCTIVE AIRWAYS DISEASE [None]
  - CHEST PAIN [None]
